FAERS Safety Report 6923107-3 (Version None)
Quarter: 2010Q3

REPORT INFORMATION
  Report Type: 
  Country: None (occurrence: None)
  Receive Date: 20100813
  Receipt Date: 20100806
  Transmission Date: 20110219
  Serious: Yes (Death, Hospitalization)
  Sender: FDA-Public Use
  Company Number: US-PFIZER INC-2009244458

PATIENT
  Sex: Female
  Weight: 73.016 kg

DRUGS (21)
  1. BLINDED *IBUPROFEN [Suspect]
     Indication: OSTEOARTHRITIS
     Dosage: UNK
     Route: 048
     Dates: start: 20090625, end: 20090712
  2. NAPROXEN [Suspect]
     Indication: OSTEOARTHRITIS
     Dosage: UNK
     Route: 048
     Dates: start: 20090625, end: 20090712
  3. BLINDED *NO SUBJECT DRUG [Suspect]
     Indication: OSTEOARTHRITIS
     Dosage: UNK
     Route: 048
     Dates: start: 20090625, end: 20090712
  4. BLINDED *PLACEBO [Suspect]
     Indication: OSTEOARTHRITIS
     Dosage: UNK
     Route: 048
     Dates: start: 20090625, end: 20090712
  5. BLINDED CELECOXIB [Suspect]
     Indication: OSTEOARTHRITIS
     Dosage: UNK
     Route: 048
     Dates: start: 20090625, end: 20090712
  6. BLINDED IBUPROFEN [Suspect]
     Dosage: UNK
     Route: 048
     Dates: start: 20090625, end: 20090712
  7. NAPROXEN [Suspect]
     Dosage: UNK
     Route: 048
     Dates: start: 20090625, end: 20090712
  8. NEXIUM [Concomitant]
     Dosage: UNK
     Route: 048
     Dates: start: 20090101
  9. ALBUTEROL SULFATE [Concomitant]
     Dosage: UNK
     Route: 055
     Dates: start: 20000101
  10. BUMETANIDE [Concomitant]
     Dosage: UNK
     Route: 048
     Dates: start: 20060101
  11. COREG CR [Concomitant]
     Dosage: UNK
     Route: 048
     Dates: start: 20080101
  12. CRESTOR [Concomitant]
     Dosage: UNK
     Route: 048
     Dates: start: 20080101
  13. DIGITEK [Concomitant]
     Dosage: UNK
     Route: 048
     Dates: start: 20000101
  14. GLIPIZIDE [Concomitant]
     Dosage: UNK
     Route: 048
     Dates: start: 20020101
  15. JANUMET [Concomitant]
     Dosage: UNK
     Route: 048
     Dates: start: 20080101
  16. LISINOPRIL [Concomitant]
     Dosage: UNK
     Route: 048
     Dates: start: 20050101
  17. MIRAPEX [Concomitant]
     Dosage: UNK
     Route: 048
     Dates: start: 20080101
  18. NEURONTIN [Concomitant]
     Dosage: UNK
     Route: 048
     Dates: start: 20000101
  19. PROPOXYPHENE NAPSYLATE [Concomitant]
     Dosage: UNK
     Route: 048
     Dates: start: 20000101
  20. SERTRALINE [Concomitant]
     Dosage: UNK
     Route: 048
     Dates: start: 20060101
  21. CARVEDILOL [Concomitant]
     Indication: HYPERTENSION
     Dosage: 12.5 MG
     Route: 048
     Dates: start: 20090707

REACTIONS (2)
  - ANGINA PECTORIS [None]
  - INTESTINAL ISCHAEMIA [None]
